FAERS Safety Report 9074936 (Version 3)
Quarter: 2013Q2

REPORT INFORMATION
  Report Type: Report from Study
  Country: US (occurrence: US)
  Receive Date: 20130129
  Receipt Date: 20130416
  Transmission Date: 20140414
  Serious: Yes (Other)
  Sender: FDA-Public Use
  Company Number: US-US-EMD SERONO, INC.-7189830

PATIENT
  Age: 60 Year
  Sex: Female
  Weight: 100 kg

DRUGS (4)
  1. REBIF [Suspect]
     Indication: MULTIPLE SCLEROSIS
     Route: 058
     Dates: start: 20080416
  2. NEURONTIN [Concomitant]
     Indication: NEURALGIA
  3. PROTONIX [Concomitant]
     Indication: GASTRIC ULCER
  4. ALEVE                              /00256202/ [Concomitant]
     Indication: PREMEDICATION

REACTIONS (6)
  - Rotator cuff syndrome [Recovering/Resolving]
  - Fall [Recovering/Resolving]
  - Balance disorder [Not Recovered/Not Resolved]
  - Gait disturbance [Not Recovered/Not Resolved]
  - Feeling hot [Recovered/Resolved]
  - Injection site pain [Recovered/Resolved]
